FAERS Safety Report 7717032-8 (Version None)
Quarter: 2011Q3

REPORT INFORMATION
  Report Type: 
  Country: None (occurrence: None)
  Receive Date: 20110829
  Receipt Date: 20110727
  Transmission Date: 20111222
  Serious: Yes (Hospitalization)
  Sender: FDA-Public Use
  Company Number: PHHY2011US68066

PATIENT
  Sex: Female
  Weight: 101.2 kg

DRUGS (1)
  1. EXJADE [Suspect]
     Indication: IRON METABOLISM DISORDER
     Dosage: 3000 MG, DAILY
     Route: 048
     Dates: start: 20100414

REACTIONS (1)
  - CEREBROVASCULAR ACCIDENT [None]
